FAERS Safety Report 7473935-3 (Version None)
Quarter: 2011Q2

REPORT INFORMATION
  Report Type: 
  Country: None (occurrence: None)
  Receive Date: 20110511
  Receipt Date: 20110428
  Transmission Date: 20111010
  Serious: Yes (Hospitalization)
  Sender: FDA-Public Use
  Company Number: CA-JNJFOC-20110500866

PATIENT
  Sex: Female
  Weight: 69 kg

DRUGS (17)
  1. METHOTREXATE [Concomitant]
     Route: 058
  2. REMICADE [Suspect]
     Route: 042
  3. ACETAMINOPHEN [Concomitant]
     Dosage: 1-2 TAB Q4HR PRN
  4. CALCIUM AND VITAMIN D [Concomitant]
     Dosage: DOSE: 500/400
  5. PLAVIX [Concomitant]
  6. IMODIUM [Concomitant]
     Dosage: PRN
  7. CRESTOR [Concomitant]
     Dosage: QHS
  8. REMICADE [Suspect]
     Indication: CROHN'S DISEASE
     Route: 042
  9. REMICADE [Suspect]
     Route: 042
  10. RITALIN [Concomitant]
  11. EFFEXOR [Concomitant]
  12. REMICADE [Suspect]
     Route: 042
  13. FOLIC ACID [Concomitant]
  14. GRAVOL TAB [Concomitant]
     Dosage: PRN
  15. ACETAMINOPHEN [Concomitant]
     Indication: PREMEDICATION
     Dosage: 2 TABS 30 MIN PRIOR TO INFUSION
  16. BENADRYL [Concomitant]
     Indication: PREMEDICATION
     Dosage: 30 MIN PRIOR TO INFUSION
  17. SERAX [Concomitant]

REACTIONS (1)
  - CEREBROVASCULAR ACCIDENT [None]
